FAERS Safety Report 25863833 (Version 1)
Quarter: 2025Q3

REPORT INFORMATION
  Report Type: Spontaneous
  Country: CN (occurrence: CN)
  Receive Date: 20250930
  Receipt Date: 20250930
  Transmission Date: 20251021
  Serious: Yes (Hospitalization)
  Sender: CATALYST PHARMA
  Company Number: CN-CATALYSTPHARMACEUTICALPARTNERS-CN-CATA-25-01454

PATIENT
  Age: 34 Year
  Sex: Female

DRUGS (1)
  1. FYCOMPA [Suspect]
     Active Substance: PERAMPANEL
     Indication: Epilepsy
     Dosage: 4.0 MILLIGRAM(S) (4 MILLIGRAM(S), 1 IN 1 DAY) TOOK MORE THAN 20 TABLETS
     Route: 048
     Dates: start: 20250901

REACTIONS (6)
  - Abnormal behaviour [Recovering/Resolving]
  - Cognitive disorder [Recovering/Resolving]
  - Asthenia [Recovering/Resolving]
  - Confusional state [Recovering/Resolving]
  - Somnolence [Recovering/Resolving]
  - Intentional overdose [Unknown]

NARRATIVE: CASE EVENT DATE: 20250901
